FAERS Safety Report 5464666-X (Version None)
Quarter: 2007Q3

REPORT INFORMATION
  Report Type: 
  Country: None (occurrence: None)
  Receive Date: 20070921
  Receipt Date: 20070910
  Transmission Date: 20080115
  Serious: Yes (Other)
  Sender: FDA-Public Use
  Company Number: US-PFIZER INC-2005027841

PATIENT
  Sex: Female
  Weight: 98.4 kg

DRUGS (7)
  1. SILDENAFIL (PAH) [Suspect]
     Indication: PULMONARY HYPERTENSION
     Route: 048
     Dates: start: 20040401, end: 20050401
  2. VERAPAMIL [Concomitant]
     Route: 048
  3. ECHINACEA [Concomitant]
     Route: 048
  4. CLARITIN [Concomitant]
     Route: 048
  5. CARDURA [Concomitant]
     Route: 048
  6. ACCUPRIL [Concomitant]
     Route: 048
  7. NICOTROL [Concomitant]
     Route: 055

REACTIONS (5)
  - EYE OEDEMA [None]
  - FEELING ABNORMAL [None]
  - FLUID RETENTION [None]
  - OVERWEIGHT [None]
  - VISUAL DISTURBANCE [None]
